FAERS Safety Report 8858600 (Version 3)
Quarter: 2013Q1

REPORT INFORMATION
  Report Type: Spontaneous
  Country: US (occurrence: US)
  Receive Date: 20121024
  Receipt Date: 20130205
  Transmission Date: 20140127
  Serious: Yes (Hospitalization)
  Sender: FDA-Public Use
  Company Number: US-GILEAD-2012-0063404

PATIENT
  Age: 57 Year
  Sex: Male

DRUGS (5)
  1. LETAIRIS [Suspect]
     Indication: PULMONARY HYPERTENSION
     Dosage: 10 MG, QD
     Route: 048
     Dates: start: 20120928
  2. LETAIRIS [Suspect]
     Indication: PORTAL HYPERTENSION
  3. LETAIRIS [Suspect]
     Indication: LIVER DISORDER
  4. REVATIO [Concomitant]
  5. TYVASO [Concomitant]

REACTIONS (3)
  - Rectal haemorrhage [Unknown]
  - Dyspnoea [Unknown]
  - Oedema [Unknown]
